FAERS Safety Report 16308960 (Version 1)
Quarter: 2019Q2

REPORT INFORMATION
  Report Type: Spontaneous
  Country: US (occurrence: US)
  Receive Date: 20190514
  Receipt Date: 20190514
  Transmission Date: 20190711
  Serious: No
  Sender: FDA-Public Use
  Company Number: US-PFIZER INC-2019203647

PATIENT
  Age: 74 Year
  Sex: Female

DRUGS (1)
  1. SINEQUAN [Suspect]
     Active Substance: DOXEPIN HYDROCHLORIDE
     Dosage: UNK

REACTIONS (3)
  - Nightmare [Unknown]
  - Drug hypersensitivity [Unknown]
  - Anxiety [Unknown]

NARRATIVE: CASE EVENT DATE: 1985
